FAERS Safety Report 19163048 (Version 1)
Quarter: 2021Q2

REPORT INFORMATION
  Report Type: Spontaneous
  Country: KR (occurrence: KR)
  Receive Date: 20210421
  Receipt Date: 20210421
  Transmission Date: 20210717
  Serious: Yes (Other)
  Sender: FDA-Public Use
  Company Number: KR-SUN PHARMACEUTICAL INDUSTRIES LTD-2021R1-292514

PATIENT
  Age: 81 Year
  Sex: Male

DRUGS (1)
  1. CLONAZEPAM. [Suspect]
     Active Substance: CLONAZEPAM
     Indication: INSOMNIA
     Dosage: 0.25 MG/DAY
     Route: 065

REACTIONS (1)
  - Lichenoid keratosis [Recovered/Resolved]
